FAERS Safety Report 22112472 (Version 1)
Quarter: 2023Q1

REPORT INFORMATION
  Report Type: Spontaneous
  Country: US (occurrence: US)
  Receive Date: 20230319
  Receipt Date: 20230319
  Transmission Date: 20230417
  Serious: Yes (Other)
  Sender: FDA-Public Use
  Company Number: US-Accord-304309

PATIENT
  Age: 69 Year
  Sex: Female

DRUGS (3)
  1. ETOPOSIDE [Suspect]
     Active Substance: ETOPOSIDE
     Indication: Haemophagocytic lymphohistiocytosis
  2. DEXAMETHASONE [Suspect]
     Active Substance: DEXAMETHASONE
     Indication: Haemophagocytic lymphohistiocytosis
  3. DOXYCYCLINE [Concomitant]
     Active Substance: DOXYCYCLINE
     Indication: Haemophagocytic lymphohistiocytosis

REACTIONS (3)
  - Pneumonia bacterial [Unknown]
  - Renal failure [Unknown]
  - Off label use [Unknown]
